FAERS Safety Report 24314045 (Version 1)
Quarter: 2024Q3

REPORT INFORMATION
  Report Type: Other
  Country: US (occurrence: US)
  Receive Date: 20240912
  Receipt Date: 20240912
  Transmission Date: 20241016
  Serious: No
  Sender: SIGMA TAU
  Company Number: US-LEADIANT BIOSCIENCES, INC.-2024LBI000263

PATIENT
  Sex: Female

DRUGS (1)
  1. MATULANE [Suspect]
     Active Substance: PROCARBAZINE HYDROCHLORIDE
     Indication: Brain neoplasm malignant
     Dosage: TAKE 1 CAPSULE (50 MG) DAILY FOR 14 DAYS ON DAYS 8 THROUGH 21
     Dates: start: 20240222

REACTIONS (4)
  - Thrombocytopenia [Unknown]
  - Weight decreased [Unknown]
  - Fatigue [Unknown]
  - Brain fog [Unknown]
